FAERS Safety Report 5753189-6 (Version None)
Quarter: 2008Q2

REPORT INFORMATION
  Report Type: 
  Country: None (occurrence: None)
  Receive Date: 20080530
  Receipt Date: 20080527
  Transmission Date: 20081010
  Serious: Yes (Hospitalization, Other)
  Sender: FDA-Public Use
  Company Number: FR-BRISTOL-MYERS SQUIBB COMPANY-14207351

PATIENT
  Age: 47 Year
  Sex: Male

DRUGS (2)
  1. SUSTIVA [Suspect]
     Route: 048
     Dates: start: 20070917, end: 20071001
  2. TRUVADA [Concomitant]
     Dates: start: 20070917

REACTIONS (2)
  - DELIRIUM [None]
  - SKULL FRACTURED BASE [None]
